FAERS Safety Report 6654341-8 (Version None)
Quarter: 2010Q1

REPORT INFORMATION
  Report Type: 
  Country: None (occurrence: None)
  Receive Date: 20100326
  Receipt Date: 20100319
  Transmission Date: 20100710
  Serious: No
  Sender: FDA-Public Use
  Company Number: B0642377A

PATIENT
  Sex: Female
  Weight: 49 kg

DRUGS (6)
  1. RELENZA [Suspect]
     Indication: INFLUENZA
     Dosage: 20MG PER DAY
     Route: 055
     Dates: start: 20100121, end: 20100125
  2. CALONAL [Concomitant]
     Indication: ANTIPYRESIS
     Route: 065
     Dates: start: 20100121, end: 20100125
  3. KENTAN [Concomitant]
     Indication: ARTHRALGIA
     Dosage: 180MG PER DAY
     Route: 048
     Dates: start: 20100121, end: 20100125
  4. DASEN [Concomitant]
     Indication: ANTIINFLAMMATORY THERAPY
     Dosage: 30MG PER DAY
     Route: 048
     Dates: start: 20100121, end: 20100125
  5. MEDICON [Concomitant]
     Indication: ANTITUSSIVE THERAPY
     Dosage: 45MG PER DAY
     Route: 048
     Dates: start: 20100121, end: 20100125
  6. CLEANAL [Concomitant]
     Indication: PRODUCTIVE COUGH
     Dosage: 600MG PER DAY
     Route: 048
     Dates: start: 20100121, end: 20100125

REACTIONS (1)
  - DRUG EXPOSURE DURING PREGNANCY [None]
